FAERS Safety Report 17770992 (Version 5)
Quarter: 2021Q3

REPORT INFORMATION
  Report Type: Spontaneous
  Country: US (occurrence: US)
  Receive Date: 20200512
  Receipt Date: 20210716
  Transmission Date: 20211014
  Serious: No
  Sender: FDA-Public Use
  Company Number: US-PFIZER INC-2020189434

PATIENT
  Age: 59 Year
  Sex: Male

DRUGS (2)
  1. INLYTA [Suspect]
     Active Substance: AXITINIB
     Indication: METASTATIC NEOPLASM
     Dosage: 5 MG, 2X/DAY (SWALLOW WHOLE, AVOID GRAPEFRUIT PRODUCTS)
  2. INLYTA [Suspect]
     Active Substance: AXITINIB
     Dosage: 5 MG, 1X/DAY

REACTIONS (6)
  - Blister [Unknown]
  - Hypertension [Recovering/Resolving]
  - COVID-19 [Recovering/Resolving]
  - Feeling hot [Unknown]
  - Product dose omission issue [Unknown]
  - Rash [Recovering/Resolving]
